FAERS Safety Report 25588108 (Version 1)
Quarter: 2025Q3

REPORT INFORMATION
  Report Type: Spontaneous
  Country: US (occurrence: US)
  Receive Date: 20250722
  Receipt Date: 20250722
  Transmission Date: 20251021
  Serious: No
  Sender: ELI LILLY AND COMPANY
  Company Number: US-ELI_LILLY_AND_COMPANY-US202507013807

PATIENT

DRUGS (2)
  1. OLUMIANT [Suspect]
     Active Substance: BARICITINIB
     Indication: Product used for unknown indication
     Route: 065
  2. LITFULO [Concomitant]
     Active Substance: RITLECITINIB TOSYLATE
     Indication: Product used for unknown indication
     Route: 065

REACTIONS (3)
  - Stress [Unknown]
  - Acne [Unknown]
  - Drug ineffective [Unknown]
